FAERS Safety Report 8966294 (Version 3)
Quarter: 2013Q1

REPORT INFORMATION
  Report Type: Spontaneous
  Country: US (occurrence: US)
  Receive Date: 20121217
  Receipt Date: 20130118
  Transmission Date: 20140127
  Serious: Yes (Hospitalization, Other)
  Sender: FDA-Public Use
  Company Number: US-JNJFOC-20121111359

PATIENT
  Sex: Male

DRUGS (2)
  1. RISPERDAL [Suspect]
     Indication: MOOD SWINGS
     Route: 048
  2. RISPERDAL [Suspect]
     Indication: IMPULSIVE BEHAVIOUR
     Route: 048

REACTIONS (5)
  - Arthritis infective [Unknown]
  - Osteomyelitis [Unknown]
  - Bone density decreased [Unknown]
  - Blood prolactin increased [Unknown]
  - Bone disorder [Unknown]
